FAERS Safety Report 7969125-8 (Version None)
Quarter: 2011Q4

REPORT INFORMATION
  Report Type: 
  Country: None (occurrence: None)
  Receive Date: 20111209
  Receipt Date: 20111130
  Transmission Date: 20120403
  Serious: Yes (Disabling)
  Sender: FDA-Public Use
  Company Number: FR-ASTRAZENECA-2011SE73028

PATIENT
  Age: 60 Year
  Sex: Female

DRUGS (6)
  1. ARIMIDEX [Suspect]
     Indication: BREAST CANCER
     Route: 048
     Dates: start: 20110420, end: 20110909
  2. NORDAZ [Concomitant]
  3. ESOMEPRAZOLE SODIUM [Concomitant]
  4. CHONDROSULF [Concomitant]
  5. KETOPROFEN [Concomitant]
  6. SULPIRIDE [Concomitant]

REACTIONS (6)
  - FATIGUE [None]
  - HOT FLUSH [None]
  - PALPITATIONS [None]
  - EYE DISORDER [None]
  - BREAST PAIN [None]
  - CARPAL TUNNEL SYNDROME [None]
